FAERS Safety Report 25263669 (Version 4)
Quarter: 2025Q2

REPORT INFORMATION
  Report Type: Spontaneous
  Country: JP (occurrence: JP)
  Receive Date: 20250502
  Receipt Date: 20250521
  Transmission Date: 20250717
  Serious: Yes (Life-Threatening, Hospitalization, Other)
  Sender: PFIZER
  Company Number: JP-PFIZER INC-PV202500051670

PATIENT
  Age: 73 Year
  Sex: Male

DRUGS (6)
  1. BEVACIZUMAB [Suspect]
     Active Substance: BEVACIZUMAB
     Indication: Lung adenocarcinoma
  2. BEVACIZUMAB [Suspect]
     Active Substance: BEVACIZUMAB
  3. CARBOPLATIN [Concomitant]
     Active Substance: CARBOPLATIN
     Indication: Lung adenocarcinoma
  4. CARBOPLATIN [Concomitant]
     Active Substance: CARBOPLATIN
  5. PEMETREXED [Concomitant]
     Active Substance: PEMETREXED
     Indication: Lung adenocarcinoma
  6. PEMETREXED [Concomitant]
     Active Substance: PEMETREXED

REACTIONS (1)
  - Laryngeal necrosis [Not Recovered/Not Resolved]
